FAERS Safety Report 10447554 (Version 4)
Quarter: 2014Q4

REPORT INFORMATION
  Report Type: Spontaneous
  Country: IT (occurrence: IT)
  Receive Date: 20140911
  Receipt Date: 20141205
  Transmission Date: 20150528
  Serious: Yes (Other)
  Sender: FDA-Public Use
  Company Number: IT-UCBSA-2014010955

PATIENT
  Age: 68 Year
  Sex: Male

DRUGS (5)
  1. ADESITRIN [Suspect]
     Active Substance: NITROGLYCERIN
     Indication: CARDIAC FAILURE
     Dosage: 10MG DAILY
     Route: 062
     Dates: start: 20000107, end: 20140727
  2. VYTORIN [Concomitant]
     Active Substance: EZETIMIBE\SIMVASTATIN
     Dosage: 10MG
  3. DILTIAZEM HYDROCHLORIDE. [Suspect]
     Active Substance: DILTIAZEM HYDROCHLORIDE
     Indication: CARDIAC DISORDER
     Dosage: 90MG DAILY
     Route: 048
     Dates: start: 20000107
  4. PANTOPAN [Concomitant]
     Active Substance: PANTOPRAZOLE SODIUM
     Route: 048
  5. LOSAPREX [Suspect]
     Active Substance: LOSARTAN POTASSIUM
     Indication: HYPERTENSION
     Dosage: 50MG DAILY
     Route: 048
     Dates: start: 20000107, end: 20140727

REACTIONS (3)
  - Tachycardia [Recovering/Resolving]
  - Chest discomfort [Recovering/Resolving]
  - Cardiac flutter [Recovering/Resolving]

NARRATIVE: CASE EVENT DATE: 20140726
